FAERS Safety Report 4702414-9 (Version None)
Quarter: 2005Q2

REPORT INFORMATION
  Report Type: 
  Country: None (occurrence: None)
  Receive Date: 20050629
  Receipt Date: 20041210
  Transmission Date: 20051028
  Serious: No
  Sender: FDA-Public Use
  Company Number: US-GLAXOSMITHKLINE-A0536848A

PATIENT
  Age: 26 Year
  Sex: Female
  Weight: 61 kg

DRUGS (10)
  1. FORTAZ [Suspect]
     Indication: PNEUMONIA
     Dosage: 2G THREE TIMES PER DAY
     Route: 042
     Dates: start: 20041208
  2. ACETAMINOPHEN [Concomitant]
  3. ACETAZOLAMIDE [Concomitant]
  4. VALPROIC ACID [Concomitant]
  5. MULTI-VITAMIN [Concomitant]
  6. PREVACID [Concomitant]
  7. FUROSEMIDE [Concomitant]
  8. OLANZAPINE [Concomitant]
  9. DIAZEPAM [Concomitant]
  10. ZITHROMAX [Concomitant]

REACTIONS (3)
  - INFUSION SITE REACTION [None]
  - INJECTION SITE HAEMORRHAGE [None]
  - INJECTION SITE SWELLING [None]
